FAERS Safety Report 15717314 (Version 1)
Quarter: 2018Q4

REPORT INFORMATION
  Report Type: Spontaneous
  Country: US (occurrence: US)
  Receive Date: 20181129
  Receipt Date: 20181129
  Transmission Date: 20190205
  Serious: Yes (Death)
  Sender: FDA-Public Use
  Company Number: None

PATIENT
  Age: 60 Year
  Sex: Female

DRUGS (5)
  1. TAFINLAR [Suspect]
     Active Substance: DABRAFENIB MESYLATE
     Indication: BRAIN NEOPLASM MALIGNANT
     Route: 048
     Dates: start: 20180803, end: 20181116
  2. MEKINIST [Concomitant]
     Active Substance: TRAMETINIB DIMETHYL SULFOXIDE
  3. VIMPAT [Suspect]
     Active Substance: LACOSAMIDE
  4. ENOXAPARIN [Concomitant]
     Active Substance: ENOXAPARIN
  5. TAFINLAR [Suspect]
     Active Substance: DABRAFENIB MESYLATE
     Indication: METASTASIS
     Route: 048
     Dates: start: 20180803, end: 20181116

REACTIONS (1)
  - Death [None]

NARRATIVE: CASE EVENT DATE: 20181116
